FAERS Safety Report 19001968 (Version 1)
Quarter: 2021Q1

REPORT INFORMATION
  Report Type: Spontaneous
  Country: US (occurrence: US)
  Receive Date: 20210311
  Receipt Date: 20210311
  Transmission Date: 20210420
  Serious: Yes (Hospitalization)
  Sender: FDA-Public Use
  Company Number: None

PATIENT
  Age: 54 Year
  Sex: Female

DRUGS (17)
  1. ALBURTEROL HFA [Concomitant]
  2. MESALAMINE. [Concomitant]
     Active Substance: MESALAMINE
  3. XARELTO [Concomitant]
     Active Substance: RIVAROXABAN
  4. ZOLPIDEM [Concomitant]
     Active Substance: ZOLPIDEM TARTRATE
  5. PROLIA [Suspect]
     Active Substance: DENOSUMAB
     Indication: SENILE OSTEOPOROSIS
     Dosage: ?          OTHER FREQUENCY:EVERY 6 MONTHS;?
     Route: 058
     Dates: start: 20200905
  6. GABAPENTIN. [Concomitant]
     Active Substance: GABAPENTIN
  7. HYDROCO/APAP [Concomitant]
     Active Substance: ACETAMINOPHEN\HYDROCODONE
  8. BENLYSTA [Suspect]
     Active Substance: BELIMUMAB
     Indication: SYSTEMIC LUPUS ERYTHEMATOSUS
     Route: 058
     Dates: start: 20200630
  9. FLUOXETINE [Concomitant]
     Active Substance: FLUOXETINE HYDROCHLORIDE
  10. MORPHINE SUL [Concomitant]
     Active Substance: MORPHINE SULFATE
  11. METOPROL SUC ER [Concomitant]
     Active Substance: METOPROLOL SUCCINATE
  12. AZATHIOPRINE. [Concomitant]
     Active Substance: AZATHIOPRINE
  13. CLONAZEPAM. [Concomitant]
     Active Substance: CLONAZEPAM
  14. FLUCONAZOLE. [Concomitant]
     Active Substance: FLUCONAZOLE
  15. HYDROXYCHLOR [Concomitant]
     Active Substance: HYDROXYCHLOROQUINE
  16. OXYCODONE [Concomitant]
     Active Substance: OXYCODONE
  17. PANTOPRAZOLE [Concomitant]
     Active Substance: PANTOPRAZOLE

REACTIONS (3)
  - Therapy interrupted [None]
  - Hip arthroplasty [None]
  - Condition aggravated [None]

NARRATIVE: CASE EVENT DATE: 20210310
